FAERS Safety Report 11106745 (Version 3)
Quarter: 2015Q2

REPORT INFORMATION
  Report Type: Spontaneous
  Country: US (occurrence: US)
  Receive Date: 20150512
  Receipt Date: 20150615
  Transmission Date: 20150821
  Serious: No
  Sender: FDA-Public Use
  Company Number: US-PFIZER INC-2015126369

PATIENT
  Age: 81 Year
  Sex: Female

DRUGS (5)
  1. ESTRING [Suspect]
     Active Substance: ESTRADIOL
     Indication: INCONTINENCE
     Dosage: 2 MG, EVERY 3 MONTHS
     Route: 067
     Dates: start: 20140428
  2. ESTRING [Suspect]
     Active Substance: ESTRADIOL
     Indication: PAIN
  3. ESTRACE [Concomitant]
     Active Substance: ESTRADIOL
     Indication: VULVOVAGINAL DISCOMFORT
  4. ESTRACE [Concomitant]
     Active Substance: ESTRADIOL
     Indication: VULVOVAGINAL DRYNESS
     Dosage: UNK
     Dates: start: 20140407
  5. ESTRING [Suspect]
     Active Substance: ESTRADIOL
     Indication: DISCOMFORT

REACTIONS (4)
  - Product use issue [Not Recovered/Not Resolved]
  - Drug dispensing error [Unknown]
  - Dizziness [Unknown]
  - Inappropriate schedule of drug administration [Unknown]

NARRATIVE: CASE EVENT DATE: 20140428
